FAERS Safety Report 6573512-2 (Version None)
Quarter: 2010Q1

REPORT INFORMATION
  Report Type: 
  Country: None (occurrence: None)
  Receive Date: 20100208
  Receipt Date: 20100127
  Transmission Date: 20100710
  Serious: Yes (Hospitalization)
  Sender: FDA-Public Use
  Company Number: DE-WYE-H13291110

PATIENT
  Sex: Male

DRUGS (4)
  1. PANTOZOL [Suspect]
     Dosage: OVERDOSE AMOUNT OF TWO 40 MG TABLETS
     Route: 048
  2. BALDRIAN-DISPERT [Suspect]
     Dosage: OVERDOSE AMOUNT UNSPECIFIED
     Route: 048
  3. ACETYLSALICYLIC ACID/CAFFEINE/PARACETAMOL [Suspect]
     Dosage: OVERDOSE AMOUNT OF 2 TABLETS
     Route: 048
  4. IBUPROFEN [Suspect]
     Dosage: OVERDOSE AMOUNT OF 13 G
     Route: 048

REACTIONS (4)
  - HYPERTENSION [None]
  - INTENTIONAL OVERDOSE [None]
  - SUICIDE ATTEMPT [None]
  - TACHYCARDIA [None]
